FAERS Safety Report 6383283-0 (Version None)
Quarter: 2009Q4

REPORT INFORMATION
  Report Type: 
  Country: None (occurrence: None)
  Receive Date: 20091001
  Receipt Date: 20080306
  Transmission Date: 20100525
  Serious: Yes (Death, Other)
  Sender: FDA-Public Use
  Company Number: US-ASTRAZENECA-2006UW08502

PATIENT
  Sex: Male

DRUGS (6)
  1. SEROQUEL [Suspect]
     Indication: DEMENTIA
     Route: 048
     Dates: start: 20030819, end: 20030101
  2. CARAFATE [Concomitant]
     Dates: start: 20030929
  3. RT-ALBUTEROL [Concomitant]
     Dates: start: 20030929
  4. HEPARIN [Concomitant]
     Dosage: 5000U/1ML
     Dates: start: 20030929
  5. PAXIL [Concomitant]
     Dates: start: 20030929
  6. PROTONIX [Concomitant]
     Dates: start: 20030929

REACTIONS (3)
  - DEATH [None]
  - DIABETES MELLITUS [None]
  - PANCREATITIS [None]
